FAERS Safety Report 8609681-X (Version None)
Quarter: 2012Q3

REPORT INFORMATION
  Report Type: 
  Country: None (occurrence: None)
  Receive Date: 20120821
  Receipt Date: 20120817
  Transmission Date: 20120928
  Serious: Yes (Death, Hospitalization)
  Sender: FDA-Public Use
  Company Number: US-B.I. PHARMACEUTICALS,INC./RIDGEFIELD-2012-BP-16586BP

PATIENT
  Age: 82 Year
  Sex: Male
  Weight: 65 kg

DRUGS (10)
  1. KCI [Concomitant]
  2. LANTUS [Concomitant]
  3. LOVAZA [Concomitant]
  4. VYTORIN [Concomitant]
  5. OPTIVATE [Concomitant]
  6. LISINOPRIL AND HYDROCHLOROTHIAZIDE [Concomitant]
  7. NOVOLOG [Concomitant]
  8. LASIX [Concomitant]
  9. PRADAXA [Suspect]
     Indication: ATRIAL FIBRILLATION
     Dosage: 300 MG
     Dates: end: 20120708
  10. VITAMIN D [Concomitant]

REACTIONS (4)
  - HYPERCOAGULATION [None]
  - WEIGHT DECREASED [None]
  - EMBOLIC STROKE [None]
  - CEREBROVASCULAR ACCIDENT [None]
